FAERS Safety Report 6367478-8 (Version None)
Quarter: 2009Q3

REPORT INFORMATION
  Report Type: 
  Country: None (occurrence: None)
  Receive Date: 20090921
  Receipt Date: 20090907
  Transmission Date: 20100115
  Serious: Yes (Other)
  Sender: FDA-Public Use
  Company Number: D0062435A

PATIENT
  Sex: Female

DRUGS (8)
  1. VIANI FORTE [Suspect]
     Route: 055
  2. AVELOX [Suspect]
     Route: 065
  3. SPIRIVA [Suspect]
     Route: 065
  4. THEOPHYLLINE [Concomitant]
     Dosage: 375MG TWICE PER DAY
     Route: 048
  5. PREDNISOLONE [Concomitant]
     Route: 065
  6. SINGULAIR [Concomitant]
     Route: 065
  7. BEROTEC [Concomitant]
     Route: 055
  8. ATMADISC FORTE [Concomitant]
     Route: 055

REACTIONS (6)
  - ASTHMA [None]
  - BRONCHOSPASM [None]
  - DRUG INEFFECTIVE [None]
  - DYSPNOEA [None]
  - GENERAL PHYSICAL HEALTH DETERIORATION [None]
  - PULMONARY FUNCTION TEST DECREASED [None]
